FAERS Safety Report 5410075-9 (Version None)
Quarter: 2007Q3

REPORT INFORMATION
  Report Type: 
  Country: None (occurrence: None)
  Receive Date: 20070713
  Receipt Date: 20070606
  Transmission Date: 20080115
  Serious: No
  Sender: FDA-Public Use
  Company Number: 2007SP002127

PATIENT
  Age: 50 Year
  Sex: Female

DRUGS (2)
  1. LUNESTA [Suspect]
     Indication: INSOMNIA
     Dosage: 3 MG;HS;ORAL
     Route: 048
     Dates: start: 20060801, end: 20070501
  2. ANTIHYPERTENSIVES [Concomitant]

REACTIONS (2)
  - DRUG EFFECT DECREASED [None]
  - REBOUND EFFECT [None]
